FAERS Safety Report 13938976 (Version 1)
Quarter: 2017Q3

REPORT INFORMATION
  Report Type: Spontaneous
  Country: US (occurrence: None)
  Receive Date: 20170906
  Receipt Date: 20170906
  Transmission Date: 20171127
  Serious: Yes (Hospitalization)
  Sender: FDA-Public Use
  Company Number: None

PATIENT
  Age: 62 Year
  Sex: Female
  Weight: 69.7 kg

DRUGS (3)
  1. VELCADE [Concomitant]
     Active Substance: BORTEZOMIB
     Dates: end: 20170825
  2. DEXAMETHASONE. [Suspect]
     Active Substance: DEXAMETHASONE
     Dates: end: 20170826
  3. LENALIDOMIDE (CC-5013) [Concomitant]
     Active Substance: LENALIDOMIDE
     Dates: end: 20170828

REACTIONS (3)
  - Osteoporosis [None]
  - Pelvic pain [None]
  - Fractured sacrum [None]

NARRATIVE: CASE EVENT DATE: 20170831
